FAERS Safety Report 4944716-7 (Version None)
Quarter: 2006Q1

REPORT INFORMATION
  Report Type: 
  Country: None (occurrence: None)
  Receive Date: 20060315
  Receipt Date: 20060123
  Transmission Date: 20060701
  Serious: Yes (Other)
  Sender: FDA-Public Use
  Company Number: JP-BOEHRINGER INGELHEIM PHARMACEUTICALS, INC.-2006-BP-01775YA

PATIENT
  Sex: Male

DRUGS (3)
  1. HARNAL [Suspect]
     Indication: BENIGN PROSTATIC HYPERPLASIA
     Route: 048
     Dates: start: 20051125, end: 20051128
  2. AMLODIN [Concomitant]
     Dates: start: 20050725, end: 20051219
  3. POLLAKISU [Concomitant]
     Dates: start: 20051125, end: 20051128

REACTIONS (3)
  - FACE OEDEMA [None]
  - FLUSHING [None]
  - SKIN EXFOLIATION [None]
